FAERS Safety Report 16974177 (Version 1)
Quarter: 2019Q4

REPORT INFORMATION
  Report Type: Spontaneous
  Country: US (occurrence: US)
  Receive Date: 20191030
  Receipt Date: 20191030
  Transmission Date: 20200122
  Serious: Yes (Death, Other)
  Sender: FDA-Public Use
  Company Number: US-PFIZER INC-2018478925

PATIENT
  Age: 72 Year
  Sex: Male

DRUGS (2)
  1. VFEND [Suspect]
     Active Substance: VORICONAZOLE
     Indication: ACUTE MYELOID LEUKAEMIA
     Dosage: 200 MG, 2X/DAY
  2. VFEND [Suspect]
     Active Substance: VORICONAZOLE
     Indication: BONE MARROW DISORDER

REACTIONS (3)
  - Death [Fatal]
  - Off label use [Unknown]
  - Product use in unapproved indication [Unknown]

NARRATIVE: CASE EVENT DATE: 20190221
